FAERS Safety Report 23705431 (Version 1)
Quarter: 2024Q2

REPORT INFORMATION
  Report Type: Other
  Country: GB (occurrence: GB)
  Receive Date: 20240404
  Receipt Date: 20240404
  Transmission Date: 20240715
  Serious: Yes (Life-Threatening, Other)
  Sender: FDA-Public Use
  Company Number: None

PATIENT
  Sex: Female

DRUGS (1)
  1. MIRABEGRON [Suspect]
     Active Substance: MIRABEGRON
     Indication: Incontinence
     Route: 065
     Dates: start: 20240320, end: 20240323

REACTIONS (5)
  - Delirium [Recovered/Resolved]
  - Screaming [Recovered/Resolved]
  - Urinary retention [Recovering/Resolving]
  - Urinary tract infection [Unknown]
  - Medication error [Unknown]
